FAERS Safety Report 4947020-6 (Version None)
Quarter: 2006Q1

REPORT INFORMATION
  Report Type: 
  Country: None (occurrence: None)
  Receive Date: 20060310
  Receipt Date: 20030420
  Transmission Date: 20060701
  Serious: Yes (Death)
  Sender: FDA-Public Use
  Company Number: US-SHR-03-006485

PATIENT
  Sex: Male
  Weight: 80.5 kg

DRUGS (1)
  1. QUADRAMET [Suspect]
     Indication: METASTATIC PAIN
     Dosage: 1 MCL/KG *80.5 KG), 1 DOSE, INTRAVENOUS
     Route: 042
     Dates: start: 20030322, end: 20030322

REACTIONS (5)
  - BLOOD COUNT ABNORMAL [None]
  - BLOOD CREATININE INCREASED [None]
  - BLOOD UREA INCREASED [None]
  - PLATELET COUNT DECREASED [None]
  - WHITE BLOOD CELL COUNT DECREASED [None]
